FAERS Safety Report 4741289-9 (Version None)
Quarter: 2005Q3

REPORT INFORMATION
  Report Type: 
  Country: None (occurrence: None)
  Receive Date: 20050810
  Receipt Date: 20041228
  Transmission Date: 20060218
  Serious: No
  Sender: FDA-Public Use
  Company Number: US-GLAXOSMITHKLINE-A0538578A

PATIENT
  Age: 39 Year
  Sex: Female

DRUGS (3)
  1. PAXIL [Suspect]
     Dosage: 80MG PER DAY
     Route: 048
  2. ABILIFY [Concomitant]
  3. ZOLOFT [Concomitant]

REACTIONS (2)
  - DRUG INEFFECTIVE [None]
  - DRUG WITHDRAWAL SYNDROME [None]
